FAERS Safety Report 4710912-7 (Version None)
Quarter: 2005Q2

REPORT INFORMATION
  Report Type: 
  Country: None (occurrence: None)
  Receive Date: 20050629
  Receipt Date: 20050303
  Transmission Date: 20051028
  Serious: No
  Sender: FDA-Public Use
  Company Number: 04P-163-0252007-00

PATIENT
  Age: 50 Year
  Sex: Male
  Weight: 103 kg

DRUGS (9)
  1. HUMIRA [Suspect]
     Indication: PSORIATIC ARTHROPATHY
     Dosage: 40 MG, 1 IN 2 WK, SUBCUTANEOUS
     Route: 058
     Dates: start: 20040101, end: 20040225
  2. HYZAAR [Concomitant]
  3. ALLOPURINOL [Concomitant]
  4. GLUCOPHAGE [Concomitant]
  5. BUPROPION HYDROCHLORIDE [Concomitant]
  6. PAROXETINE HYDROCHLORIDE [Concomitant]
  7. PROPACET 100 [Concomitant]
  8. SILDENAFIL CITRATE [Concomitant]
  9. CALCIPOTRIENE [Concomitant]

REACTIONS (6)
  - BLOOD GLUCOSE INCREASED [None]
  - DRUG INEFFECTIVE [None]
  - INJECTION SITE IRRITATION [None]
  - NASOPHARYNGITIS [None]
  - SINUSITIS [None]
  - VERTIGO [None]
